FAERS Safety Report 11808649 (Version 1)
Quarter: 2015Q4

REPORT INFORMATION
  Report Type: Spontaneous
  Country: US (occurrence: US)
  Receive Date: 20151207
  Receipt Date: 20151207
  Transmission Date: 20160305
  Serious: No
  Sender: FDA-Public Use
  Company Number: US-ROCHE-1533597

PATIENT

DRUGS (8)
  1. TAMIFLU [Suspect]
     Active Substance: OSELTAMIVIR PHOSPHATE
     Indication: PRODUCT USED FOR UNKNOWN INDICATION
     Route: 048
     Dates: start: 201002, end: 201002
  2. LYRICA [Suspect]
     Active Substance: PREGABALIN
     Indication: BACK INJURY
     Route: 065
  3. SYNTHROID [Concomitant]
     Active Substance: LEVOTHYROXINE SODIUM
     Route: 065
  4. VALIUM [Suspect]
     Active Substance: DIAZEPAM
     Indication: PRODUCT USED FOR UNKNOWN INDICATION
     Dosage: ONE TIME DOSE
     Route: 048
     Dates: end: 197307
  5. SKELAXIN [Suspect]
     Active Substance: METAXALONE
     Indication: MUSCLE STRAIN
     Dosage: AS REQUIRED, 2 YEARS OR MORE
     Route: 065
     Dates: end: 201101
  6. AMOXICILLIN. [Suspect]
     Active Substance: AMOXICILLIN
     Indication: PRODUCT USED FOR UNKNOWN INDICATION
     Route: 065
  7. NEURONTIN [Suspect]
     Active Substance: GABAPENTIN
     Indication: BACK PAIN
     Route: 048
     Dates: start: 201409
  8. MOBIC [Concomitant]
     Active Substance: MELOXICAM
     Route: 065

REACTIONS (5)
  - Hypersensitivity [Unknown]
  - Pharyngeal oedema [Unknown]
  - Eye swelling [Unknown]
  - Somnolence [Unknown]
  - Rash generalised [Unknown]
